FAERS Safety Report 18573236 (Version 4)
Quarter: 2021Q1

REPORT INFORMATION
  Report Type: Spontaneous
  Country: DE (occurrence: DE)
  Receive Date: 20201203
  Receipt Date: 20210204
  Transmission Date: 20210419
  Serious: Yes (Other)
  Sender: FDA-Public Use
  Company Number: DE-GLAXOSMITHKLINE-DE2020227727

PATIENT
  Sex: Male

DRUGS (2)
  1. QUETIAPINE. [Concomitant]
     Active Substance: QUETIAPINE
     Indication: RESTLESSNESS
     Dosage: 150 UNK
     Dates: start: 202003
  2. ELONTRIL [Suspect]
     Active Substance: BUPROPION HYDROCHLORIDE
     Indication: DEPRESSION
     Dosage: 300 MG, QD, FOR EVER
     Dates: start: 202003

REACTIONS (4)
  - Drug dependence [Unknown]
  - Drug screen positive [Unknown]
  - Road traffic accident [Unknown]
  - Drug screen false positive [Unknown]
